FAERS Safety Report 4847504-5 (Version None)
Quarter: 2005Q4

REPORT INFORMATION
  Report Type: 
  Country: None (occurrence: None)
  Receive Date: 20051207
  Receipt Date: 20050826
  Transmission Date: 20060501
  Serious: Yes (Death, Hospitalization)
  Sender: FDA-Public Use
  Company Number: FRWYE934026AUG05

PATIENT
  Age: 54 Year
  Sex: Male

DRUGS (4)
  1. ENBREL [Suspect]
     Indication: RHEUMATOID ARTHRITIS
     Dosage: 50 MG WEEKLY
     Route: 058
     Dates: start: 20030415, end: 20040915
  2. HUMIRA [Suspect]
     Indication: RHEUMATOID ARTHRITIS
     Dosage: 40 MG
     Route: 042
     Dates: start: 20041105, end: 20041105
  3. NOVATREX [Suspect]
     Indication: RHEUMATOID ARTHRITIS
     Route: 048
     Dates: start: 20030101
  4. CORTANCYL [Suspect]
     Indication: RHEUMATOID ARTHRITIS
     Route: 048
     Dates: start: 20000101

REACTIONS (8)
  - ACINETOBACTER INFECTION [None]
  - DIARRHOEA [None]
  - HODGKIN'S DISEASE [None]
  - HYPOVOLAEMIC SHOCK [None]
  - LISTERIA SEPSIS [None]
  - MULTI-ORGAN FAILURE [None]
  - PNEUMONIA BACTERIAL [None]
  - SEPTIC SHOCK [None]
